FAERS Safety Report 7570106-7 (Version None)
Quarter: 2011Q2

REPORT INFORMATION
  Report Type: 
  Country: None (occurrence: None)
  Receive Date: 20110622
  Receipt Date: 20110622
  Transmission Date: 20111010
  Serious: Yes (Other)
  Sender: FDA-Public Use
  Company Number: None

PATIENT
  Sex: Female
  Weight: 59.8748 kg

DRUGS (1)
  1. PROLIA [Suspect]

REACTIONS (6)
  - FEELING COLD [None]
  - SOMNOLENCE [None]
  - SPINAL DISORDER [None]
  - MUSCLE SPASMS [None]
  - FIBROMYALGIA [None]
  - EAR PAIN [None]
